FAERS Safety Report 9286280 (Version 1)
Quarter: 2013Q2

REPORT INFORMATION
  Report Type: Spontaneous
  Country: US (occurrence: US)
  Receive Date: 20130513
  Receipt Date: 20130513
  Transmission Date: 20140414
  Serious: No
  Sender: FDA-Public Use
  Company Number: US-B.I. PHARMACEUTICALS,INC./RIDGEFIELD-2013-BI-11907BP

PATIENT
  Sex: Female
  Weight: 63 kg

DRUGS (4)
  1. SPIRIVA [Suspect]
     Indication: CHRONIC OBSTRUCTIVE PULMONARY DISEASE
     Dosage: 18 MCG
     Route: 055
     Dates: start: 2009
  2. LEXAPRO [Concomitant]
     Indication: ANXIETY
     Dosage: 20 MG
     Route: 048
  3. DETROL LA [Concomitant]
     Indication: URINARY INCONTINENCE
     Route: 048
  4. ZYPREXA [Concomitant]
     Indication: ANXIETY
     Dosage: 0.5 MG
     Route: 048

REACTIONS (2)
  - Palpitations [Not Recovered/Not Resolved]
  - Tachypnoea [Not Recovered/Not Resolved]
